FAERS Safety Report 20882953 (Version 2)
Quarter: 2022Q2

REPORT INFORMATION
  Report Type: Spontaneous
  Country: RO (occurrence: RO)
  Receive Date: 20220527
  Receipt Date: 20220607
  Transmission Date: 20220721
  Serious: Yes (Other)
  Sender: FDA-Public Use
  Company Number: None

PATIENT
  Age: 51 Year
  Sex: Male

DRUGS (1)
  1. IMATINIB [Suspect]
     Active Substance: IMATINIB
     Indication: Dermatofibrosarcoma protuberans metastatic
     Dosage: 800 MG, QD
     Route: 065

REACTIONS (2)
  - Dysplastic naevus [Not Recovered/Not Resolved]
  - Pigmentation disorder [Not Recovered/Not Resolved]
